FAERS Safety Report 16106417 (Version 1)
Quarter: 2019Q1

REPORT INFORMATION
  Report Type: Spontaneous
  Country: US (occurrence: US)
  Receive Date: 20190322
  Receipt Date: 20190322
  Transmission Date: 20190418
  Serious: No
  Sender: FDA-Public Use
  Company Number: US-ARRAY-2019-05174

PATIENT

DRUGS (2)
  1. MEKTOVI [Suspect]
     Active Substance: BINIMETINIB
     Indication: NEOPLASM MALIGNANT
     Dosage: 30 MG, BID
     Route: 048
     Dates: start: 20181221
  2. BRAFTOVI [Suspect]
     Active Substance: ENCORAFENIB
     Indication: NEOPLASM MALIGNANT
     Dosage: 375 MG, QD
     Route: 048
     Dates: start: 20181221

REACTIONS (3)
  - Blood creatinine increased [Unknown]
  - Dehydration [Unknown]
  - Product use in unapproved indication [Unknown]
